FAERS Safety Report 17109301 (Version 1)
Quarter: 2019Q4

REPORT INFORMATION
  Report Type: Spontaneous
  Country: DE (occurrence: DE)
  Receive Date: 20191204
  Receipt Date: 20191204
  Transmission Date: 20200122
  Serious: Yes (Disabling, Other)
  Sender: FDA-Public Use
  Company Number: DE-SA-2019SA248881

PATIENT
  Age: 33 Year
  Sex: Female
  Weight: 65 kg

DRUGS (5)
  1. LEMTRADA [Suspect]
     Active Substance: ALEMTUZUMAB
     Dosage: 12 MG
     Route: 041
     Dates: start: 20190204, end: 20190206
  2. LEMTRADA [Suspect]
     Active Substance: ALEMTUZUMAB
     Dosage: UNK UNK, UNK
     Route: 041
     Dates: start: 201701
  3. LEMTRADA [Suspect]
     Active Substance: ALEMTUZUMAB
     Dosage: UNK UNK, UNK
     Route: 041
     Dates: start: 201501
  4. LEMTRADA [Suspect]
     Active Substance: ALEMTUZUMAB
     Indication: RELAPSING-REMITTING MULTIPLE SCLEROSIS
     Dosage: UNK UNK, UNK
     Route: 041
     Dates: start: 201401
  5. CORTISONE [Concomitant]
     Active Substance: CORTISONE
     Dosage: UNK
     Dates: start: 201901

REACTIONS (35)
  - Walking aid user [Unknown]
  - Vision blurred [Unknown]
  - Cerebellar ataxia [Unknown]
  - T-lymphocyte count increased [Unknown]
  - Blood glucose increased [Unknown]
  - Visual field defect [Unknown]
  - Urine ketone body present [Unknown]
  - Nitrite urine present [Recovered/Resolved]
  - Loss of personal independence in daily activities [Unknown]
  - Gait disturbance [Unknown]
  - Migraine [Unknown]
  - White blood cells urine positive [Not Recovered/Not Resolved]
  - Visual impairment [Unknown]
  - Ataxia [Unknown]
  - Red blood cells urine [Not Recovered/Not Resolved]
  - Headache [Unknown]
  - Coordination abnormal [Unknown]
  - Urobilinogen urine increased [Unknown]
  - Drug intolerance [Unknown]
  - Decreased vibratory sense [Unknown]
  - C-reactive protein increased [Unknown]
  - Red cell distribution width decreased [Recovered/Resolved]
  - Specific gravity urine decreased [Not Recovered/Not Resolved]
  - Fatigue [Unknown]
  - Lhermitte^s sign [Unknown]
  - Blood alkaline phosphatase decreased [Unknown]
  - Urinary sediment present [Unknown]
  - B-lymphocyte count increased [Unknown]
  - Pregnancy [Unknown]
  - Dizziness [Unknown]
  - Multiple sclerosis [Unknown]
  - Acute disseminated encephalomyelitis [Unknown]
  - Quadriparesis [Unknown]
  - Demyelination [Unknown]
  - Drug ineffective [Unknown]

NARRATIVE: CASE EVENT DATE: 2016
